FAERS Safety Report 7990223-7 (Version None)
Quarter: 2011Q4

REPORT INFORMATION
  Report Type: 
  Country: None (occurrence: None)
  Receive Date: 20111219
  Receipt Date: 20111214
  Transmission Date: 20120403
  Serious: Yes (Death)
  Sender: FDA-Public Use
  Company Number: US-PFIZER INC-2011304664

PATIENT
  Sex: Female

DRUGS (8)
  1. LETAIRIS [Suspect]
     Indication: PULMONARY ARTERIAL HYPERTENSION
     Dosage: 10 MG, UNK
     Route: 048
     Dates: start: 20110501, end: 20111101
  2. SPIRIVA [Concomitant]
     Dosage: UNK
  3. SILDENAFIL CITRATE [Suspect]
     Dosage: UNK
  4. TIOTROPIUM [Suspect]
     Dosage: UNK
     Dates: start: 20111012
  5. LASIX [Concomitant]
     Dosage: UNK
  6. NIFEDIPINE [Concomitant]
     Dosage: UNK
  7. ALBUTEROL [Concomitant]
     Dosage: UNK
  8. CIALIS [Concomitant]
     Dosage: UNK

REACTIONS (1)
  - CHRONIC OBSTRUCTIVE PULMONARY DISEASE [None]
